FAERS Safety Report 8175917-5 (Version None)
Quarter: 2012Q1

REPORT INFORMATION
  Report Type: 
  Country: None (occurrence: None)
  Receive Date: 20120301
  Receipt Date: 20120224
  Transmission Date: 20120608
  Serious: No
  Sender: FDA-Public Use
  Company Number: US-PFIZER INC-2012051264

PATIENT

DRUGS (1)
  1. DILANTIN-125 [Suspect]
     Dosage: 50 MG

REACTIONS (1)
  - HYPERSENSITIVITY [None]
